FAERS Safety Report 8875672 (Version 1)
Quarter: 2012Q4

REPORT INFORMATION
  Report Type: Report from Study
  Country: US (occurrence: US)
  Receive Date: 20121030
  Receipt Date: 20121030
  Transmission Date: 20130627
  Serious: Yes (Hospitalization)
  Sender: FDA-Public Use
  Company Number: US-ROCHE-1078829

PATIENT
  Age: 47 Year
  Sex: Female
  Weight: 82 kg

DRUGS (33)
  1. BEVACIZUMAB [Suspect]
     Indication: OVARIAN EPITHELIAL CANCER
     Dosage: Over 30-90 minutes on day 1 of cycles 2+
     Route: 042
     Dates: start: 20120321
  2. PACLITAXEL [Suspect]
     Indication: OVARIAN EPITHELIAL CANCER
     Dosage: over 1 hr on days 1,8 and 15(cycles 1-6)
     Route: 042
     Dates: start: 20120301
  3. CARBOPLATIN [Suspect]
     Indication: OVARIAN EPITHELIAL CANCER
     Dosage: AUV 6 on day 1 (cycles 1-6)
     Route: 042
     Dates: start: 20120301
  4. ALOXI [Concomitant]
  5. APRESOLINE [Concomitant]
  6. ATIVAN [Concomitant]
  7. CEPHALEXIN [Concomitant]
  8. CITROMA [Concomitant]
  9. DEXAMETHASONE [Concomitant]
  10. DILAUDID [Concomitant]
  11. DIPHENHYDRAMINE [Concomitant]
  12. DORIPENEM [Concomitant]
  13. DULCOLAX (BISACODYL) [Concomitant]
  14. ERTAPENEM [Concomitant]
  15. FAMOTIDINE [Concomitant]
  16. LASIX [Concomitant]
  17. LISINOPRIL [Concomitant]
  18. LOMOTIL [Concomitant]
  19. LOVENOX [Concomitant]
  20. MAGNESIUM SULFATE [Concomitant]
  21. MICAFUNGIN [Concomitant]
  22. MORPHINE [Concomitant]
  23. MYCAMINE [Concomitant]
  24. ONDANSETRON [Concomitant]
  25. PEPCID [Concomitant]
  26. POTASSIUM CHLORIDE [Concomitant]
  27. PROZAC [Concomitant]
  28. TAXOL [Concomitant]
  29. TORADOL [Concomitant]
  30. SCOPOLAMINE [Concomitant]
     Route: 062
  31. TYLENOL [Concomitant]
  32. VANCOMYCIN [Concomitant]
  33. VENTOLIN HFA [Concomitant]

REACTIONS (5)
  - Pelvic infection [Recovered/Resolved with Sequelae]
  - Anal fistula [Recovered/Resolved with Sequelae]
  - Ileostomy [Recovered/Resolved]
  - Hypokalaemia [Recovered/Resolved]
  - Wound infection [Recovered/Resolved]
